FAERS Safety Report 9708610 (Version 2)
Quarter: 2014Q1

REPORT INFORMATION
  Report Type: Spontaneous
  Country: IT (occurrence: IT)
  Receive Date: 20131125
  Receipt Date: 20140117
  Transmission Date: 20141002
  Serious: Yes (Hospitalization)
  Sender: FDA-Public Use
  Company Number: IT-PFIZER INC-2013329971

PATIENT
  Age: 77 Year
  Sex: Male

DRUGS (5)
  1. TOTALIP [Suspect]
     Dosage: 10 MG, DAILY
     Route: 048
     Dates: start: 20130301, end: 20131017
  2. BISOPROLOL FUMARATE [Concomitant]
     Dosage: 1.25 MG, UNK
     Route: 048
  3. SINTROM [Concomitant]
     Dosage: UNK
  4. OMNIC [Concomitant]
     Dosage: UNK
  5. ALMARYTM [Concomitant]
     Dosage: 100 MG, UNK
     Route: 048

REACTIONS (1)
  - Idiopathic urticaria [Recovering/Resolving]
